FAERS Safety Report 15435317 (Version 1)
Quarter: 2018Q3

REPORT INFORMATION
  Report Type: Spontaneous
  Country: US (occurrence: US)
  Receive Date: 20180927
  Receipt Date: 20180927
  Transmission Date: 20181010
  Serious: Yes (Death)
  Sender: FDA-Public Use
  Company Number: US-ABBVIE-18S-163-2496310-00

PATIENT
  Sex: Male
  Weight: 65.76 kg

DRUGS (2)
  1. LEVOTHYROXINE. [Suspect]
     Active Substance: LEVOTHYROXINE
     Indication: THYROID HORMONES INCREASED
     Route: 048
     Dates: start: 20180613
  2. CABOMETYX [Suspect]
     Active Substance: CABOZANTINIB S-MALATE
     Indication: RENAL CANCER
     Route: 065
     Dates: start: 20180602, end: 201807

REACTIONS (8)
  - Oral mucosal blistering [Unknown]
  - Skin wound [Unknown]
  - Death [Fatal]
  - Cough [Unknown]
  - Thyroid hormones increased [Unknown]
  - Joint swelling [Unknown]
  - Dysphagia [Unknown]
  - Rash [Unknown]

NARRATIVE: CASE EVENT DATE: 2018
